FAERS Safety Report 14196664 (Version 1)
Quarter: 2017Q4

REPORT INFORMATION
  Report Type: Spontaneous
  Country: US (occurrence: US)
  Receive Date: 20171116
  Receipt Date: 20171116
  Transmission Date: 20180321
  Serious: Yes (Other)
  Sender: FDA-Public Use
  Company Number: US-ALEXION-A201712631

PATIENT
  Age: 27 Year
  Sex: Female

DRUGS (3)
  1. KANUMA [Suspect]
     Active Substance: SEBELIPASE ALFA
     Dosage: 3 MG/KG, WEEKLY
     Route: 065
     Dates: start: 201608
  2. KANUMA [Suspect]
     Active Substance: SEBELIPASE ALFA
     Dosage: 3 MG/KG, EVERY OTHER WEEK
     Route: 065
     Dates: start: 201606
  3. KANUMA [Suspect]
     Active Substance: SEBELIPASE ALFA
     Indication: LYSOSOMAL ACID LIPASE DEFICIENCY
     Dosage: 1 MG/KG, EVERY OTHER WEEK
     Route: 065
     Dates: start: 201601

REACTIONS (2)
  - Arrhythmia [Recovered/Resolved]
  - Drug ineffective [Unknown]
